FAERS Safety Report 4960153-3 (Version None)
Quarter: 2006Q1

REPORT INFORMATION
  Report Type: 
  Country: None (occurrence: None)
  Receive Date: 20060331
  Receipt Date: 20060321
  Transmission Date: 20060701
  Serious: Yes (Other)
  Sender: FDA-Public Use
  Company Number: US-ABBOTT-06P-163-0328768-00

PATIENT
  Age: 3 Year
  Sex: Male

DRUGS (1)
  1. SYNTHROID [Suspect]
     Indication: DRUG USE FOR UNKNOWN INDICATION
     Dosage: UP TO 41 TABLETS

REACTIONS (3)
  - ACCIDENTAL EXPOSURE [None]
  - GRAND MAL CONVULSION [None]
  - OVERDOSE [None]
